FAERS Safety Report 8230520-3 (Version None)
Quarter: 2012Q1

REPORT INFORMATION
  Report Type: 
  Country: None (occurrence: None)
  Receive Date: 20120323
  Receipt Date: 20120315
  Transmission Date: 20120608
  Serious: Yes (Hospitalization, Other)
  Sender: FDA-Public Use
  Company Number: US-US-EMD SERONO, INC.-7119867

PATIENT
  Sex: Female

DRUGS (2)
  1. REBIF [Suspect]
     Route: 058
     Dates: start: 20061229, end: 20070416
  2. REBIF [Suspect]
     Route: 058
     Dates: start: 20080701, end: 20110701

REACTIONS (2)
  - INJECTION SITE CELLULITIS [None]
  - SCLERODERMA [None]
